FAERS Safety Report 13772578 (Version 2)
Quarter: 2018Q1

REPORT INFORMATION
  Report Type: Spontaneous
  Country: AR (occurrence: AR)
  Receive Date: 20170720
  Receipt Date: 20180125
  Transmission Date: 20180508
  Serious: Yes (Death, Other)
  Sender: FDA-Public Use
  Company Number: AR-BAYER-2017-134359

PATIENT
  Age: 56 Year
  Sex: Female

DRUGS (3)
  1. STIVARGA [Suspect]
     Active Substance: REGORAFENIB
     Indication: RECTAL CANCER METASTATIC
     Dosage: DAILY DOSE 160 MG
     Dates: start: 201601, end: 201604
  2. STIVARGA [Suspect]
     Active Substance: REGORAFENIB
     Indication: RECTAL CANCER METASTATIC
     Dosage: 80 MG DAILY
     Dates: start: 201603, end: 2016
  3. STIVARGA [Suspect]
     Active Substance: REGORAFENIB
     Indication: RECTAL CANCER METASTATIC
     Dosage: UNK
     Dates: start: 201604

REACTIONS (14)
  - Rectal cancer metastatic [Fatal]
  - Alanine aminotransferase increased [Unknown]
  - Palmar-plantar erythrodysaesthesia syndrome [Unknown]
  - Asthenia [Unknown]
  - Bile duct obstruction [Unknown]
  - Retroperitoneal lymphadenopathy [Unknown]
  - Aspartate aminotransferase increased [Unknown]
  - Oedema peripheral [Unknown]
  - Mucosal inflammation [Recovered/Resolved]
  - Metastases to liver [Unknown]
  - Oral candidiasis [Unknown]
  - Mucosal inflammation [Unknown]
  - Jaundice [Unknown]
  - Diarrhoea [Unknown]

NARRATIVE: CASE EVENT DATE: 201608
